FAERS Safety Report 8560213-4 (Version None)
Quarter: 2012Q3

REPORT INFORMATION
  Report Type: 
  Country: None (occurrence: None)
  Receive Date: 20120802
  Receipt Date: 20120723
  Transmission Date: 20120928
  Serious: Yes (Other)
  Sender: FDA-Public Use
  Company Number: CN-PFIZER INC-2012183004

PATIENT

DRUGS (2)
  1. ZYVOX [Suspect]
     Indication: INFECTION
  2. STATINS [Concomitant]
     Route: 048

REACTIONS (1)
  - RHABDOMYOLYSIS [None]
